FAERS Safety Report 7356846-3 (Version None)
Quarter: 2011Q1

REPORT INFORMATION
  Report Type: 
  Country: None (occurrence: None)
  Receive Date: 20110317
  Receipt Date: 20110309
  Transmission Date: 20110831
  Serious: Yes (Hospitalization)
  Sender: FDA-Public Use
  Company Number: DE-BIOGENIDEC-2011BI003981

PATIENT
  Age: 48 Year
  Sex: Female
  Weight: 76 kg

DRUGS (2)
  1. CLEXANE [Concomitant]
     Indication: THROMBOSIS PROPHYLAXIS
     Route: 058
     Dates: start: 20110128, end: 20110129
  2. TYSABRI [Suspect]
     Indication: RELAPSING-REMITTING MULTIPLE SCLEROSIS
     Route: 042
     Dates: start: 20090101

REACTIONS (1)
  - PARTIAL SEIZURES WITH SECONDARY GENERALISATION [None]
